FAERS Safety Report 25598985 (Version 1)
Quarter: 2025Q3

REPORT INFORMATION
  Report Type: Spontaneous
  Country: US (occurrence: US)
  Receive Date: 20250724
  Receipt Date: 20250724
  Transmission Date: 20251021
  Serious: Yes (Life-Threatening, Other)
  Sender: EMERGENT BIOSOLUTIONS
  Company Number: US-Emergent Biosolutions-25000094

PATIENT
  Age: 23 Year
  Sex: Female

DRUGS (2)
  1. NALOXONE HYDROCHLORIDE [Suspect]
     Active Substance: NALOXONE HYDROCHLORIDE
     Indication: Overdose
     Route: 045
  2. DIAZEPAM [Concomitant]
     Active Substance: DIAZEPAM
     Indication: Seizure
     Route: 065

REACTIONS (1)
  - Non-cardiogenic pulmonary oedema [Recovered/Resolved]
